FAERS Safety Report 17599911 (Version 1)
Quarter: 2020Q1

REPORT INFORMATION
  Report Type: Spontaneous
  Country: US (occurrence: US)
  Receive Date: 20200330
  Receipt Date: 20200330
  Transmission Date: 20200409
  Serious: Yes (Other)
  Sender: FDA-Public Use
  Company Number: US-PFIZER INC-2020129954

PATIENT
  Age: 77 Year
  Sex: Female
  Weight: 73.94 kg

DRUGS (1)
  1. FLECTOR [Suspect]
     Active Substance: DICLOFENAC EPOLAMINE
     Indication: PAIN
     Dosage: UNK
     Route: 062

REACTIONS (4)
  - Hip fracture [Unknown]
  - Movement disorder [Unknown]
  - Fall [Unknown]
  - Gait disturbance [Unknown]
